FAERS Safety Report 7638771-3 (Version None)
Quarter: 2011Q3

REPORT INFORMATION
  Report Type: 
  Country: None (occurrence: None)
  Receive Date: 20110727
  Receipt Date: 20110714
  Transmission Date: 20111222
  Serious: Yes (Other)
  Sender: FDA-Public Use
  Company Number: JP-ROCHE-790081

PATIENT
  Sex: Male
  Weight: 52.8 kg

DRUGS (25)
  1. MELOXICAM [Concomitant]
     Dates: start: 20081219
  2. URSODIOL [Concomitant]
     Dates: start: 20110413
  3. TOCILIZUMAB [Suspect]
     Route: 065
     Dates: start: 20100120, end: 20100901
  4. OCRELIZUMAB [Suspect]
     Dosage: DAY 15, SECOND ADMINISTRATION
     Route: 042
     Dates: start: 20090304, end: 20090304
  5. FOLIC ACID [Concomitant]
     Dates: start: 20030906
  6. TEPRENONE [Concomitant]
     Dates: start: 20060602
  7. LOSARTAN POTASSIUM [Concomitant]
     Dates: start: 20041217
  8. TRIAZOLAM [Concomitant]
     Dates: start: 20110413
  9. INFLIXIMAB [Suspect]
     Dosage: 7TH ADMINISTRATION
     Route: 065
     Dates: start: 20110615
  10. ALLOPURINOL [Concomitant]
     Dates: start: 20040318
  11. AMLODIPINE BESYLATE [Concomitant]
     Dosage: DRUG REPORTED AS AMLODIPINE BESILATE
     Dates: start: 20040820
  12. ZOPICLONE [Concomitant]
     Dates: start: 20080402
  13. INFLIXIMAB [Suspect]
     Route: 065
     Dates: start: 20101117
  14. INFLIXIMAB [Suspect]
     Dosage: 6TH ADMINISTRATION
     Route: 065
     Dates: start: 20110502
  15. ATORVASTATIN CALCIUM [Concomitant]
     Dates: start: 20080402
  16. OCRELIZUMAB [Suspect]
     Dosage: WEEK 24, FOURTH ADMINISTRATION
     Route: 042
     Dates: start: 20090819, end: 20090819
  17. OCRELIZUMAB [Suspect]
     Indication: RHEUMATOID ARTHRITIS
     Dosage: FORM: INFUSION; FORM AND FREQUENCY PER PROTOCOL; LAST DOSE PRIOR TO SAE: 19 AUGUST 2009; DAY 1
     Route: 042
     Dates: start: 20090218, end: 20090218
  18. LANSOPRAZOLE [Concomitant]
     Dates: start: 20081219
  19. ROSUVASTATIN CALCIUM [Concomitant]
     Dates: start: 20100414
  20. CLARITHROMYCIN [Concomitant]
     Dates: start: 20100512
  21. OCRELIZUMAB [Suspect]
     Dosage: WEEK 24, THIRD ADMINISTRATION
     Route: 042
     Dates: start: 20090806, end: 20090806
  22. METHOTREXATE [Concomitant]
     Dates: start: 20050304
  23. MISOPROSTOL [Concomitant]
     Dates: start: 20030904
  24. PREDNISOLONE [Concomitant]
  25. KETOPROFEN [Concomitant]
     Dates: start: 20070902

REACTIONS (1)
  - GASTRIC CANCER [None]
